FAERS Safety Report 4776869-8 (Version None)
Quarter: 2005Q3

REPORT INFORMATION
  Report Type: 
  Country: None (occurrence: None)
  Receive Date: 20050921
  Receipt Date: 20050921
  Transmission Date: 20060218
  Serious: Yes (Other)
  Sender: FDA-Public Use
  Company Number: None

PATIENT
  Age: 72 Year
  Sex: Male

DRUGS (8)
  1. EZETIMIBE 10 MG (MERCK/SCHERING PLOUGH [Suspect]
     Indication: HYPERLIPIDAEMIA
     Dosage: 10 MG PO QD
     Route: 048
     Dates: start: 20050418, end: 20050617
  2. CYCLOBENZAPRINE HCL [Concomitant]
  3. DOCUSATE N [Concomitant]
  4. HYDROCODONE BITARTRATE + ACETAMINOPHEN [Concomitant]
  5. LISINOPRIL [Concomitant]
  6. METOPROLOL [Concomitant]
  7. OMEPRAZOLE [Concomitant]
  8. SILDENAFIL [Concomitant]

REACTIONS (2)
  - DIZZINESS [None]
  - MYALGIA [None]
